FAERS Safety Report 4289627-8 (Version None)
Quarter: 2004Q1

REPORT INFORMATION
  Report Type: 
  Country: None (occurrence: None)
  Receive Date: 20040203
  Receipt Date: 20030225
  Transmission Date: 20041129
  Serious: Yes (Other)
  Sender: FDA-Public Use
  Company Number: 200313539BWH

PATIENT
  Age: 28 Year
  Sex: Female

DRUGS (2)
  1. AVELOX [Suspect]
     Indication: SINUSITIS
     Dosage: 400 MG, TOTAL DAILY, ORAL
     Route: 048
     Dates: start: 20030216, end: 20030218
  2. CELEBREX [Concomitant]

REACTIONS (2)
  - DYSPNOEA [None]
  - EYE SWELLING [None]
